FAERS Safety Report 9721934 (Version 2)
Quarter: 2013Q4

REPORT INFORMATION
  Report Type: Spontaneous
  Country: US (occurrence: US)
  Receive Date: 20131202
  Receipt Date: 20131226
  Transmission Date: 20140711
  Serious: No
  Sender: FDA-Public Use
  Company Number: US-009507513-1311USA009281

PATIENT
  Age: 62 Year
  Sex: Male

DRUGS (5)
  1. ASMANEX TWISTHALER [Suspect]
     Indication: CHRONIC OBSTRUCTIVE PULMONARY DISEASE
     Dosage: 220 MICROGRAM, BID
     Route: 055
     Dates: start: 201211
  2. COMBIVENT [Suspect]
     Dosage: UNK
     Dates: start: 201211
  3. PROVENTIL [Concomitant]
  4. FORADIL [Concomitant]
  5. PROAIR (ALBUTEROL SULFATE) [Concomitant]

REACTIONS (13)
  - Osteoporosis [Unknown]
  - Painful respiration [Unknown]
  - Ear pain [Unknown]
  - Nasal dryness [Unknown]
  - Dry mouth [Unknown]
  - Dyspnoea exertional [Unknown]
  - Urinary incontinence [Unknown]
  - Musculoskeletal pain [Unknown]
  - Influenza [Unknown]
  - Pain [Unknown]
  - Dry throat [Unknown]
  - Dry skin [Unknown]
  - Product quality issue [Unknown]
